FAERS Safety Report 8543652-7 (Version None)
Quarter: 2012Q3

REPORT INFORMATION
  Report Type: 
  Country: None (occurrence: None)
  Receive Date: 20120727
  Receipt Date: 20120723
  Transmission Date: 20120928
  Serious: Yes (Other)
  Sender: FDA-Public Use
  Company Number: US-TEVA-350017USA

PATIENT
  Sex: Female
  Weight: 99.88 kg

DRUGS (1)
  1. LOSARTAN POTASSIUM [Suspect]
     Indication: BLOOD PRESSURE
     Dosage: 50 MILLIGRAM;
     Route: 048
     Dates: start: 20120101

REACTIONS (4)
  - INFLAMMATORY BOWEL DISEASE [None]
  - GASTROINTESTINAL PAIN [None]
  - GASTROINTESTINAL OEDEMA [None]
  - DIARRHOEA [None]
